FAERS Safety Report 24079513 (Version 1)
Quarter: 2024Q3

REPORT INFORMATION
  Report Type: Report from Study
  Country: TW (occurrence: TW)
  Receive Date: 20240711
  Receipt Date: 20240711
  Transmission Date: 20241017
  Serious: Yes (Other)
  Sender: BAXTER
  Company Number: TW-BAXTER-2024BAX021035

PATIENT
  Age: 68 Year
  Sex: Female
  Weight: 55.2 kg

DRUGS (6)
  1. CYCLOPHOSPHAMIDE [Suspect]
     Active Substance: CYCLOPHOSPHAMIDE
     Indication: Diffuse large B-cell lymphoma stage II
     Dosage: EVERY 3 WEEKS
     Route: 042
     Dates: start: 20240522
  2. EPCORITAMAB [Suspect]
     Active Substance: EPCORITAMAB
     Indication: Diffuse large B-cell lymphoma stage II
     Dosage: C1 (STEP-UP), CYCLES 2 - 4 (21-DAY CYCLE, WEEKLY DOSE), C5 - 8 (21-DAY CYCLE, EVERY 3 WEEKS) PER PRO
     Route: 065
     Dates: start: 20240522
  3. RITUXIMAB [Suspect]
     Active Substance: RITUXIMAB
     Indication: Diffuse large B-cell lymphoma stage II
     Dosage: EVERY 3 WEEKS
     Route: 042
     Dates: start: 20240522
  4. DOXORUBICIN [Suspect]
     Active Substance: DOXORUBICIN
     Indication: Diffuse large B-cell lymphoma stage II
     Dosage: EVERY 3 WEEKS
     Route: 042
     Dates: start: 20240522
  5. VINCRISTINE [Suspect]
     Active Substance: VINCRISTINE
     Indication: Diffuse large B-cell lymphoma stage II
     Dosage: EVERY 3 WEEKS
     Route: 042
     Dates: start: 20240522
  6. PREDNISONE [Suspect]
     Active Substance: PREDNISONE
     Indication: Diffuse large B-cell lymphoma stage II
     Dosage: C1-6, D1-5, EVERY 1 DAYS
     Route: 048
     Dates: start: 20240522

REACTIONS (1)
  - Adverse event [Not Recovered/Not Resolved]

NARRATIVE: CASE EVENT DATE: 20240626
